FAERS Safety Report 9218182 (Version 1)
Quarter: 2013Q2

REPORT INFORMATION
  Report Type: Spontaneous
  Country: GB (occurrence: GB)
  Receive Date: 20130408
  Receipt Date: 20130408
  Transmission Date: 20140414
  Serious: Yes (Other)
  Sender: FDA-Public Use
  Company Number: PHHY2013GB032192

PATIENT
  Age: 71 Year
  Sex: Male
  Weight: 89 kg

DRUGS (7)
  1. METFORMIN [Suspect]
     Dates: start: 20121212, end: 20130206
  2. METFORMIN [Suspect]
     Dosage: UNK
     Dates: start: 20130321
  3. FLOMAXTRA XL [Concomitant]
     Dates: start: 20121212, end: 20130109
  4. FLOMAXTRA XL [Concomitant]
     Dates: start: 20130207, end: 20130307
  5. LISINOPRIL [Concomitant]
     Dates: start: 20121212
  6. SIMVASTATIN [Concomitant]
     Dates: start: 20121212
  7. HYDROXOCOBALAMIN [Concomitant]
     Dates: start: 20130207, end: 20130307

REACTIONS (4)
  - Malaise [Unknown]
  - Abdominal discomfort [Unknown]
  - Abdominal pain upper [Unknown]
  - Abdominal pain lower [Unknown]
